FAERS Safety Report 25199757 (Version 2)
Quarter: 2025Q2

REPORT INFORMATION
  Report Type: Spontaneous
  Country: US (occurrence: US)
  Receive Date: 20250415
  Receipt Date: 20250424
  Transmission Date: 20250717
  Serious: Yes (Hospitalization)
  Sender: TEVA
  Company Number: US-TEVA-VS-3320074

PATIENT
  Age: 90 Year
  Sex: Female

DRUGS (1)
  1. HYDRALAZINE [Suspect]
     Active Substance: HYDRALAZINE HYDROCHLORIDE
     Indication: Hypertension
     Route: 065

REACTIONS (7)
  - Uraemic encephalopathy [Unknown]
  - Acute kidney injury [Recovered/Resolved]
  - Chronic respiratory failure [Recovering/Resolving]
  - Anti-neutrophil cytoplasmic antibody positive vasculitis [Recovering/Resolving]
  - Oliguria [Recovered/Resolved]
  - Skin lesion [Unknown]
  - Deafness neurosensory [Unknown]
